FAERS Safety Report 6000088-0 (Version None)
Quarter: 2008Q4

REPORT INFORMATION
  Report Type: 
  Country: None (occurrence: None)
  Receive Date: 20081215
  Receipt Date: 20081205
  Transmission Date: 20090506
  Serious: Yes (Hospitalization)
  Sender: FDA-Public Use
  Company Number: B0549477A

PATIENT
  Age: 79 Year
  Sex: Female

DRUGS (6)
  1. AUGMENTIN '125' [Suspect]
     Indication: URINARY TRACT INFECTION
     Route: 048
     Dates: start: 20080719, end: 20080919
  2. HYDROXYUREA [Suspect]
     Indication: MYELOPROLIFERATIVE DISORDER
     Dosage: 500MG PER DAY
     Route: 048
     Dates: start: 20080601
  3. ROCEPHIN [Suspect]
     Indication: URINARY TRACT INFECTION
     Dosage: 2G PER DAY
     Route: 042
     Dates: start: 20080720, end: 20080922
  4. NOROXIN [Concomitant]
     Indication: URINARY TRACT INFECTION
     Route: 048
     Dates: start: 20080909, end: 20080912
  5. ASPIRIN [Concomitant]
     Route: 065
  6. NITRODERM [Concomitant]
     Route: 065

REACTIONS (5)
  - CHILLS [None]
  - DISCOMFORT [None]
  - PNEUMONIA [None]
  - PYREXIA [None]
  - TREMOR [None]
